FAERS Safety Report 16297210 (Version 1)
Quarter: 2019Q2

REPORT INFORMATION
  Report Type: Report from Study
  Country: US (occurrence: US)
  Receive Date: 20190510
  Receipt Date: 20190510
  Transmission Date: 20190711
  Serious: Yes (Hospitalization, Other)
  Sender: FDA-Public Use
  Company Number: US-IPSEN BIOPHARMACEUTICALS, INC.-2019-07454

PATIENT
  Sex: Male

DRUGS (1)
  1. SOMATULINE SR [Suspect]
     Active Substance: LANREOTIDE ACETATE
     Indication: PANCREATIC NEUROENDOCRINE TUMOUR
     Dosage: DOSE NOT REPORTED
     Route: 065
     Dates: start: 2017, end: 201811

REACTIONS (3)
  - Blood pressure decreased [Recovering/Resolving]
  - Loss of consciousness [Recovered/Resolved]
  - Bradycardia [Recovering/Resolving]
